FAERS Safety Report 14517193 (Version 1)
Quarter: 2018Q1

REPORT INFORMATION
  Report Type: Spontaneous
  Country: US (occurrence: US)
  Receive Date: 20180209
  Receipt Date: 20180209
  Transmission Date: 20180509
  Serious: No
  Sender: FDA-Public Use
  Company Number: None

PATIENT
  Age: 38 Year
  Sex: Female

DRUGS (1)
  1. IBRANCE [Suspect]
     Active Substance: PALBOCICLIB
     Dosage: TAKE 2 CAPS
     Route: 048

REACTIONS (2)
  - Spinal cord disorder [None]
  - Malignant neoplasm progression [None]

NARRATIVE: CASE EVENT DATE: 20180119
